FAERS Safety Report 17716855 (Version 1)
Quarter: 2020Q2

REPORT INFORMATION
  Report Type: Spontaneous
  Country: GB (occurrence: GB)
  Receive Date: 20200428
  Receipt Date: 20200428
  Transmission Date: 20200714
  Serious: Yes (Other)
  Sender: FDA-Public Use
  Company Number: GB-TEVA-2020-GB-1227095

PATIENT
  Age: 64 Year
  Sex: Male
  Weight: 77.56 kg

DRUGS (5)
  1. AVAMYS [Concomitant]
     Active Substance: FLUTICASONE FUROATE
  2. OMEPRAZOLE. [Concomitant]
     Active Substance: OMEPRAZOLE
  3. ATORVASTATIN [Concomitant]
     Active Substance: ATORVASTATIN
  4. QVAR [Suspect]
     Active Substance: BECLOMETHASONE DIPROPIONATE
     Indication: CHRONIC OBSTRUCTIVE PULMONARY DISEASE
     Dosage: 400 MICROGRAM
     Route: 055
     Dates: start: 2015, end: 20200327
  5. ALLOPURINOL. [Concomitant]
     Active Substance: ALLOPURINOL

REACTIONS (2)
  - Oesophageal candidiasis [Recovering/Resolving]
  - Oral candidiasis [Recovering/Resolving]
